FAERS Safety Report 14441570 (Version 4)
Quarter: 2018Q1

REPORT INFORMATION
  Report Type: Spontaneous
  Country: US (occurrence: US)
  Receive Date: 20180125
  Receipt Date: 20180209
  Transmission Date: 20180509
  Serious: Yes (Death, Hospitalization, Other)
  Sender: FDA-Public Use
  Company Number: US-GLAXOSMITHKLINE-US2017GSK203120

PATIENT
  Age: 61 Year
  Sex: Female

DRUGS (4)
  1. FLOLAN DILUENT PH 12 SOLUTION FOR INJECTION [Suspect]
     Active Substance: GLYCINE\MANNITOL\SODIUM CHLORIDE
     Indication: PULMONARY HYPERTENSION
     Dosage: UNK
     Route: 042
     Dates: start: 20170216
  2. SILDENAFIL CITRATE. [Concomitant]
     Active Substance: SILDENAFIL CITRATE
     Indication: PRODUCT USED FOR UNKNOWN INDICATION
  3. FLOLAN [Suspect]
     Active Substance: EPOPROSTENOL SODIUM
     Indication: PULMONARY HYPERTENSION
     Dosage: 19 NG/KG/MIN, CO
     Route: 042
     Dates: start: 20131028
  4. LETAIRIS [Concomitant]
     Active Substance: AMBRISENTAN
     Indication: PRODUCT USED FOR UNKNOWN INDICATION

REACTIONS (4)
  - Emergency care examination [Unknown]
  - Lung transplant [Unknown]
  - Dyspnoea [Unknown]
  - Complications of transplanted lung [Fatal]

NARRATIVE: CASE EVENT DATE: 20180118
